FAERS Safety Report 6742289-X (Version None)
Quarter: 2010Q2

REPORT INFORMATION
  Report Type: 
  Country: None (occurrence: None)
  Receive Date: 20100526
  Receipt Date: 20100525
  Transmission Date: 20101027
  Serious: Yes (Hospitalization)
  Sender: FDA-Public Use
  Company Number: DE-WYE-G06116410

PATIENT
  Sex: Male

DRUGS (4)
  1. RAPAMUNE [Suspect]
     Indication: RENAL TRANSPLANT
     Route: 048
     Dates: end: 20100401
  2. DECORTIN [Concomitant]
     Indication: RENAL TRANSPLANT
     Route: 048
  3. CLARITHROMYCIN [Interacting]
     Indication: PNEUMONIA
     Dosage: UNKNOWN
     Dates: start: 20100201, end: 20100101
  4. CELLCEPT [Concomitant]
     Indication: RENAL TRANSPLANT
     Route: 048

REACTIONS (5)
  - ACCIDENTAL OVERDOSE [None]
  - BRONCHOPULMONARY ASPERGILLOSIS [None]
  - DRUG INTERACTION [None]
  - IMMUNOSUPPRESSANT DRUG LEVEL INCREASED [None]
  - PNEUMONIA [None]
